FAERS Safety Report 15304812 (Version 2)
Quarter: 2018Q3

REPORT INFORMATION
  Report Type: Report from Study
  Country: DE (occurrence: DE)
  Receive Date: 20180822
  Receipt Date: 20180823
  Transmission Date: 20181010
  Serious: Yes (Hospitalization)
  Sender: FDA-Public Use
  Company Number: DE-TEVA-2018-DE-944725

PATIENT
  Age: 71 Year
  Sex: Male
  Weight: 96 kg

DRUGS (13)
  1. FOLINIC ACID [Suspect]
     Active Substance: LEUCOVORIN
     Indication: COLORECTAL CANCER METASTATIC
     Dosage: 400 MG, UNK
     Route: 065
     Dates: start: 20180206
  2. FLUOROURACIL. [Suspect]
     Active Substance: FLUOROURACIL
     Indication: COLORECTAL CANCER METASTATIC
     Dosage: 1200 MG, UNK
     Route: 042
     Dates: start: 20180206
  3. LANTUS [Concomitant]
     Active Substance: INSULIN GLARGINE
     Indication: DIABETES MELLITUS
     Dosage: 120 IU (INTERNATIONAL UNIT) DAILY; 60 IU, BID
     Route: 058
  4. HUMALOG [Concomitant]
     Active Substance: INSULIN LISPRO
     Indication: DIABETES MELLITUS
     Dosage: 18 IU (INTERNATIONAL UNIT) DAILY; 6 IU, TID
     Route: 058
  5. IRINOTECAN [Suspect]
     Active Substance: IRINOTECAN
     Indication: COLORECTAL CANCER METASTATIC
     Dosage: 360 MG, UNK
     Route: 065
     Dates: start: 20180206
  6. BISOPROLOL?RATIOPHARM [Concomitant]
     Indication: HYPERTENSION
     Dosage: 20 MILLIGRAM DAILY; 10 MG, BID
     Route: 048
  7. FLUOROURACIL. [Suspect]
     Active Substance: FLUOROURACIL
     Route: 040
     Dates: start: 20180206
  8. PANITUMUMAB [Suspect]
     Active Substance: PANITUMUMAB
     Indication: COLORECTAL CANCER METASTATIC
     Dosage: 564 MG, UNK
     Route: 042
     Dates: start: 20180220
  9. AMLODIPIN?RATIOPHARM [Concomitant]
     Active Substance: AMLODIPINE MALEATE
     Indication: HYPERTENSION
     Dosage: 20 MILLIGRAM DAILY; 10 MG, BID
     Route: 048
  10. RAMIPRIL?RATIOPHARM [Concomitant]
     Indication: HYPERTENSION
     Dosage: 20 MILLIGRAM DAILY; 10 MG, BID
     Route: 048
  11. TAMSULOSIN RATIOPHARM [Concomitant]
     Indication: PROSTATE CANCER
     Dosage: .4 MILLIGRAM DAILY; 0.4 MG, QD
     Route: 048
  12. METFORMIN [Concomitant]
     Active Substance: METFORMIN HYDROCHLORIDE
     Indication: DIABETES MELLITUS
     Dosage: 500 MILLIGRAM DAILY; 500 MG, QD
     Route: 048
  13. ATORVASTATIN RATIOPHARM [Concomitant]
     Active Substance: ATORVASTATIN
     Indication: HYPERCHOLESTEROLAEMIA
     Dosage: 10 MILLIGRAM DAILY; 10 MG, QD
     Route: 048

REACTIONS (2)
  - Diarrhoea [Recovered/Resolved]
  - Discomfort [Recovered/Resolved]

NARRATIVE: CASE EVENT DATE: 20180629
